FAERS Safety Report 5853887-X (Version None)
Quarter: 2008Q3

REPORT INFORMATION
  Report Type: 
  Country: None (occurrence: None)
  Receive Date: 20080822
  Receipt Date: 20080821
  Transmission Date: 20090109
  Serious: Yes (Death)
  Sender: FDA-Public Use
  Company Number: A0731249B

PATIENT
  Sex: Female
  Weight: 0.4 kg

DRUGS (5)
  1. LAMIVUDINE [Suspect]
     Indication: HIV INFECTION
  2. ZIDOVUDINE [Suspect]
     Indication: HIV INFECTION
     Dosage: 300MG PER DAY
  3. KALETRA [Concomitant]
     Indication: HIV INFECTION
     Dosage: 4TABS PER DAY
     Dates: start: 20080227
  4. REYATAZ [Concomitant]
     Indication: HIV INFECTION
     Dosage: 400MG PER DAY
  5. VIREAD [Concomitant]
     Indication: HIV INFECTION
     Dosage: 1TAB WEEKLY
     Dates: start: 20080312

REACTIONS (5)
  - DRUG EXPOSURE DURING PREGNANCY [None]
  - MATERNAL DRUGS AFFECTING FOETUS [None]
  - NEONATAL RESPIRATORY DISTRESS SYNDROME [None]
  - PREMATURE BABY [None]
  - RESPIRATORY DISTRESS [None]
